FAERS Safety Report 8906257 (Version 1)
Quarter: 2012Q4

REPORT INFORMATION
  Report Type: Spontaneous
  Country: US (occurrence: None)
  Receive Date: 20121112
  Receipt Date: 20121112
  Transmission Date: 20130627
  Serious: Yes (Disabling)
  Sender: FDA-Public Use
  Company Number: None

PATIENT
  Age: 42 Year
  Sex: Male
  Weight: 102.06 kg

DRUGS (1)
  1. PROPECIA [Suspect]
     Indication: MALE PATTERN BALDNESS
     Route: 048
     Dates: start: 20040801, end: 20111101

REACTIONS (7)
  - Epididymitis [None]
  - Gynaecomastia [None]
  - Mental impairment [None]
  - Nocturia [None]
  - Insomnia [None]
  - Muscle atrophy [None]
  - Erectile dysfunction [None]
